FAERS Safety Report 5203544-8 (Version None)
Quarter: 2007Q1

REPORT INFORMATION
  Report Type: 
  Country: None (occurrence: None)
  Receive Date: 20070110
  Receipt Date: 20070108
  Transmission Date: 20070707
  Serious: Yes (Hospitalization)
  Sender: FDA-Public Use
  Company Number: US-GLAXOSMITHKLINE-A0625181A

PATIENT
  Age: 76 Year
  Sex: Male

DRUGS (9)
  1. ARIXTRA [Suspect]
     Indication: PULMONARY EMBOLISM
     Dosage: 7.5MG PER DAY
     Route: 058
     Dates: start: 20060401, end: 20061020
  2. ASPIRIN [Concomitant]
  3. PLAVIX [Concomitant]
  4. MEXILETINE HYDROCHLORIDE [Concomitant]
  5. ZOLOFT [Concomitant]
  6. VASOTEC [Concomitant]
  7. METOPROLOL SUCCINATE [Concomitant]
  8. ZOCOR [Concomitant]
  9. NITROGLYN 2% OINTMENT [Concomitant]

REACTIONS (13)
  - ABDOMINAL DISTENSION [None]
  - ASTHENIA [None]
  - BLOOD PRESSURE DECREASED [None]
  - CONTUSION [None]
  - HAEMORRHAGE [None]
  - HYPERAESTHESIA [None]
  - ILL-DEFINED DISORDER [None]
  - IMPLANTABLE DEFIBRILLATOR MALFUNCTION [None]
  - PHARMACEUTICAL PRODUCT COMPLAINT [None]
  - RED BLOOD CELL COUNT DECREASED [None]
  - RENAL IMPAIRMENT [None]
  - SKIN DISCOLOURATION [None]
  - WHITE BLOOD CELL COUNT INCREASED [None]
